FAERS Safety Report 18812120 (Version 1)
Quarter: 2021Q1

REPORT INFORMATION
  Report Type: Spontaneous
  Country: US (occurrence: US)
  Receive Date: 20210129
  Receipt Date: 20210129
  Transmission Date: 20210419
  Serious: Yes (Other)
  Sender: FDA-Public Use
  Company Number: US-009507513-2101USA009588

PATIENT
  Age: 31 Year
  Sex: Female
  Weight: 58.5 kg

DRUGS (1)
  1. NEXPLANON [Suspect]
     Active Substance: ETONOGESTREL
     Indication: CONTRACEPTION
     Dosage: 68 MILLIGRAMS, 1 IMPLANT, ONCE
     Route: 059
     Dates: start: 201907, end: 20210119

REACTIONS (2)
  - Unintended pregnancy [Not Recovered/Not Resolved]
  - Pregnancy with implant contraceptive [Not Recovered/Not Resolved]

NARRATIVE: CASE EVENT DATE: 20201222
